FAERS Safety Report 7269614-8 (Version None)
Quarter: 2011Q1

REPORT INFORMATION
  Report Type: 
  Country: None (occurrence: None)
  Receive Date: 20110202
  Receipt Date: 20110201
  Transmission Date: 20110831
  Serious: No
  Sender: FDA-Public Use
  Company Number: GB-ABBOTT-10P-167-0690290-00

PATIENT
  Sex: Male

DRUGS (2)
  1. HUMIRA [Suspect]
     Indication: PSORIASIS
     Route: 058
     Dates: start: 20091001
  2. BETNOVATE [Concomitant]
     Indication: PSORIASIS
     Route: 061

REACTIONS (1)
  - ALOPECIA [None]
